FAERS Safety Report 18299872 (Version 1)
Quarter: 2020Q3

REPORT INFORMATION
  Report Type: Spontaneous
  Country: US (occurrence: US)
  Receive Date: 20200918
  Receipt Date: 20200918
  Transmission Date: 20201103
  Serious: Yes (Other)
  Sender: FDA-Public Use
  Company Number: None

PATIENT
  Age: 74 Year
  Sex: Female
  Weight: 99 kg

DRUGS (6)
  1. LOSARTAN. [Concomitant]
     Active Substance: LOSARTAN
  2. PRAVASTATIN. [Concomitant]
     Active Substance: PRAVASTATIN
  3. NEOMYCIN,POLYMYXIN B SULFATES, BACITRACIN ZINC,HYDROCORTISONE OINTMENT [Suspect]
     Active Substance: BACITRACIN ZINC\HYDROCORTISONE\NEOMYCIN SULFATE\POLYMYXIN B SULFATE
     Dates: start: 20200913, end: 20200913
  4. SERTRALINE [Concomitant]
     Active Substance: SERTRALINE HYDROCHLORIDE
  5. MAXITROL [Suspect]
     Active Substance: DEXAMETHASONE\NEOMYCIN SULFATE\POLYMYXIN B SULFATE
  6. LEVOTHYROXINE. [Concomitant]
     Active Substance: LEVOTHYROXINE

REACTIONS (6)
  - Ocular hyperaemia [None]
  - Eye injury [None]
  - Eye pain [None]
  - Conjunctivitis [None]
  - Application site pain [None]
  - Application site pruritus [None]

NARRATIVE: CASE EVENT DATE: 20200913
